FAERS Safety Report 5742835-9 (Version None)
Quarter: 2008Q2

REPORT INFORMATION
  Report Type: 
  Country: None (occurrence: None)
  Receive Date: 20080519
  Receipt Date: 20080515
  Transmission Date: 20081010
  Serious: Yes (Life-Threatening, Hospitalization)
  Sender: FDA-Public Use
  Company Number: US-JNJFOC-20080406015

PATIENT
  Sex: Male
  Weight: 71.22 kg

DRUGS (18)
  1. TMC125 [Suspect]
     Route: 048
  2. TMC125 [Suspect]
     Indication: HIV INFECTION
     Route: 048
  3. PREZISTA [Suspect]
     Route: 048
  4. PREZISTA [Suspect]
     Indication: HIV INFECTION
     Route: 048
  5. NORVIR [Suspect]
     Indication: HIV INFECTION
     Route: 048
  6. FUZEON [Concomitant]
     Indication: HIV INFECTION
     Route: 058
  7. TRUVADA [Concomitant]
     Indication: HIV INFECTION
     Route: 048
  8. TRICOR [Concomitant]
     Indication: HYPERLIPIDAEMIA
     Dosage: STARTED PRE-TRIAL
     Route: 048
  9. SCULPTRA [Concomitant]
     Indication: FACIAL WASTING
     Dosage: STARTED PRE-TRIAL
     Route: 058
  10. LIDOCAINE AND EPINEPHRINE [Concomitant]
     Indication: FACIAL WASTING
     Dosage: 1% DOSE, STARTED PRE-TRIAL
     Route: 058
  11. LIPITOR [Concomitant]
     Indication: HYPERLIPIDAEMIA
     Route: 048
  12. VIAGRA [Concomitant]
     Indication: ERECTILE DYSFUNCTION
     Dosage: STARTED PRE-TRIAL
     Route: 048
  13. OMEPRAZOLE [Concomitant]
     Indication: GASTROOESOPHAGEAL REFLUX DISEASE
     Route: 048
  14. ALDARA [Concomitant]
     Indication: ANOGENITAL WARTS
     Dosage: STARTED PRE-TRIAL
     Route: 061
  15. CONDYLOX [Concomitant]
     Indication: ANOGENITAL WARTS
     Route: 061
  16. DRYSOL [Concomitant]
     Indication: ANOGENITAL WARTS
     Route: 061
  17. LIQUID NITROGEN [Concomitant]
     Indication: ANOGENITAL WARTS
     Dosage: STARTED PRE-TRIAL
     Route: 061
  18. RALTEGRAVIR [Concomitant]
     Indication: HIV INFECTION

REACTIONS (2)
  - DIABETIC KETOACIDOSIS [None]
  - TYPE 2 DIABETES MELLITUS [None]
